FAERS Safety Report 7555273-3 (Version None)
Quarter: 2011Q2

REPORT INFORMATION
  Report Type: 
  Country: None (occurrence: None)
  Receive Date: 20110617
  Receipt Date: 20110606
  Transmission Date: 20111010
  Serious: Yes (Hospitalization, Other)
  Sender: FDA-Public Use
  Company Number: PHHY2010GB03506

PATIENT
  Sex: Male

DRUGS (3)
  1. RADIOTHERAPY [Concomitant]
  2. CHEMOTHERAPEUTICS NOS [Concomitant]
  3. CLOZAPINE [Suspect]
     Indication: SCHIZOPHRENIA
     Dosage: UNK
     Dates: start: 19990217

REACTIONS (3)
  - WEIGHT DECREASED [None]
  - SOMNOLENCE [None]
  - TONGUE NEOPLASM MALIGNANT STAGE UNSPECIFIED [None]
